FAERS Safety Report 5806517-7 (Version None)
Quarter: 2008Q3

REPORT INFORMATION
  Report Type: 
  Country: None (occurrence: None)
  Receive Date: 20080710
  Receipt Date: 20080703
  Transmission Date: 20090109
  Serious: Yes (Other)
  Sender: FDA-Public Use
  Company Number: ES-BOEHRINGER INGELHEIM GMBH, GERMANY-2008-BP-10308RO

PATIENT
  Age: 73 Year
  Sex: Male

DRUGS (4)
  1. PREDNISOLONE [Suspect]
     Indication: SECONDARY AMYLOIDOSIS
     Dates: start: 20060101
  2. ETANERCEPT [Suspect]
     Indication: SECONDARY AMYLOIDOSIS
     Route: 058
     Dates: start: 20060101
  3. ETANERCEPT [Suspect]
  4. LAMIVUDINE [Concomitant]
     Indication: HEPATITIS B

REACTIONS (2)
  - DRUG INTERACTION [None]
  - HEPATITIS B [None]
